FAERS Safety Report 10357560 (Version 1)
Quarter: 2014Q3

REPORT INFORMATION
  Report Type: Spontaneous
  Country: DE (occurrence: DE)
  Receive Date: 20140801
  Receipt Date: 20140801
  Transmission Date: 20150326
  Serious: Yes (Other)
  Sender: FDA-Public Use
  Company Number: DE-TEVA-498273GER

PATIENT
  Age: 69 Year
  Sex: Male
  Weight: 96 kg

DRUGS (12)
  1. IRINOTECAN AWD 20 MG/ML [Suspect]
     Active Substance: IRINOTECAN
     Indication: COLON CANCER
     Route: 042
     Dates: start: 20110321, end: 20110627
  2. ONDANSETRON [Concomitant]
     Active Substance: ONDANSETRON
     Indication: PREMEDICATION
     Dosage: 24 MILLIGRAM DAILY;
     Route: 042
  3. CYNT [Concomitant]
     Active Substance: MOXONIDINE
     Indication: CARDIAC DISORDER
     Dosage: .4 MILLIGRAM DAILY;
     Dates: start: 2007
  4. BELOC ZOK [Concomitant]
     Active Substance: METOPROLOL SUCCINATE
     Indication: CARDIAC DISORDER
     Dosage: 75 MILLIGRAM DAILY;
     Dates: start: 2007
  5. FOLINS?URE [Suspect]
     Active Substance: LEUCOVORIN
     Indication: COLON CANCER
  6. EBRANTIL [Concomitant]
     Active Substance: URAPIDIL
     Indication: CARDIAC DISORDER
     Dosage: 90 MILLIGRAM DAILY;
     Dates: start: 2007
  7. AMLODIPIN [Concomitant]
     Active Substance: AMLODIPINE BESYLATE
     Indication: HYPERTENSION
     Dosage: 10 MILLIGRAM DAILY;
     Dates: start: 2007
  8. FLUOROURACIL. [Suspect]
     Active Substance: FLUOROURACIL
     Indication: COLON CANCER
  9. FLUOROURACIL. [Suspect]
     Active Substance: FLUOROURACIL
  10. LOZAAR PLUS [Concomitant]
     Indication: HYPERTENSION
     Dosage: 1 DOSAGE FORMS DAILY; 1 DOSAGE FORM = 50 MG LOSARTAN AND 12.5 MG HYDROCHLOROTHIAZIDE
     Dates: start: 2007
  11. AVASTIN [Suspect]
     Active Substance: BEVACIZUMAB
     Indication: COLON CANCER
  12. ATROPIN [Concomitant]
     Indication: PREMEDICATION
     Route: 042

REACTIONS (8)
  - Platelet count decreased [Not Recovered/Not Resolved]
  - Carcinoembryonic antigen increased [Not Recovered/Not Resolved]
  - Carbohydrate antigen 19-9 increased [Not Recovered/Not Resolved]
  - Blood potassium decreased [Not Recovered/Not Resolved]
  - Haemoglobin decreased [Not Recovered/Not Resolved]
  - Lymphocyte count decreased [Not Recovered/Not Resolved]
  - Haematocrit decreased [Not Recovered/Not Resolved]
  - Red blood cell count decreased [Not Recovered/Not Resolved]

NARRATIVE: CASE EVENT DATE: 201103
